FAERS Safety Report 7930181-4 (Version None)
Quarter: 2011Q4

REPORT INFORMATION
  Report Type: 
  Country: None (occurrence: None)
  Receive Date: 20111121
  Receipt Date: 20111111
  Transmission Date: 20120403
  Serious: Yes (Hospitalization)
  Sender: FDA-Public Use
  Company Number: DE-MILLENNIUM PHARMACEUTICALS, INC.-2011-05720

PATIENT

DRUGS (2)
  1. VELCADE [Suspect]
     Dosage: 2.6 MG, UNK
     Route: 042
     Dates: start: 20111013, end: 20111028
  2. VELCADE [Suspect]
     Indication: MULTIPLE MYELOMA
     Dosage: 2.7 MG, UNK
     Route: 042
     Dates: start: 20110726, end: 20110927

REACTIONS (2)
  - PARTIAL SEIZURES [None]
  - GENERAL PHYSICAL HEALTH DETERIORATION [None]
